FAERS Safety Report 10608765 (Version 6)
Quarter: 2017Q3

REPORT INFORMATION
  Report Type: Report from Study
  Country: GB (occurrence: GB)
  Receive Date: 20141125
  Receipt Date: 20170824
  Transmission Date: 20171127
  Serious: Yes (Hospitalization, Other)
  Sender: FDA-Public Use
  Company Number: GB-GLAXOSMITHKLINE-GB2014002486

PATIENT
  Age: 74 Year
  Sex: Female

DRUGS (4)
  1. OFATUMUMAB [Suspect]
     Active Substance: OFATUMUMAB
     Indication: CHRONIC LYMPHOCYTIC LEUKAEMIA
     Dosage: UNK
     Route: 042
     Dates: start: 20130423, end: 20130913
  2. BENDAMUSTINE [Suspect]
     Active Substance: BENDAMUSTINE
     Indication: CHRONIC LYMPHOCYTIC LEUKAEMIA
     Dosage: 125 MG SINGLE DOSE
     Route: 042
     Dates: start: 20130423, end: 20130913
  3. INFLUENZA VACCINE [Concomitant]
     Active Substance: INFLUENZA VIRUS VACCINE
  4. HZ/SU + AS01B [Suspect]
     Active Substance: INVESTIGATIONAL PRODUCT
     Indication: PROPHYLAXIS
     Dosage: 50 ?G
     Route: 030
     Dates: start: 20130903, end: 20130903

REACTIONS (2)
  - Lower respiratory tract infection [Recovered/Resolved]
  - Immune system disorder [None]

NARRATIVE: CASE EVENT DATE: 20131025
